FAERS Safety Report 4316180-2 (Version None)
Quarter: 2004Q1

REPORT INFORMATION
  Report Type: 
  Country: None (occurrence: None)
  Receive Date: 20040311
  Receipt Date: 20040311
  Transmission Date: 20041129
  Serious: Yes (Other)
  Sender: FDA-Public Use
  Company Number: None

PATIENT
  Sex: Male
  Weight: 79.3795 kg

DRUGS (7)
  1. FLUVASTATIN SA 80 MG [Suspect]
     Indication: HYPERLIPIDAEMIA
     Dosage: 80 MG QHS ORAL
     Route: 048
     Dates: start: 20031204, end: 20040301
  2. TRAZODONE HCL [Concomitant]
  3. OMEPRAZOLE [Concomitant]
  4. ASPIRIN [Concomitant]
  5. FLUTICASONE INHALER [Concomitant]
  6. IBUPROFEN [Concomitant]
  7. DOCUSATE [Concomitant]

REACTIONS (1)
  - COUGH [None]
